FAERS Safety Report 8351513-1 (Version None)
Quarter: 2012Q2

REPORT INFORMATION
  Report Type: 
  Country: None (occurrence: None)
  Receive Date: 20120511
  Receipt Date: 20120503
  Transmission Date: 20120825
  Serious: Yes (Death)
  Sender: FDA-Public Use
  Company Number: US-MYLANLABS-2012S1008146

PATIENT
  Age: 42 Year
  Sex: Male
  Weight: 79.38 kg

DRUGS (7)
  1. LATUDA [Suspect]
     Route: 048
     Dates: start: 20120206, end: 20120306
  2. LATUDA [Suspect]
     Indication: AFFECTIVE DISORDER
     Route: 048
     Dates: start: 20110928, end: 20120206
  3. INVEGA [Concomitant]
  4. LATUDA [Suspect]
     Route: 048
     Dates: start: 20120206, end: 20120306
  5. WELLBUTRIN SR [Suspect]
     Route: 048
     Dates: end: 20120306
  6. LORAZEPAM [Suspect]
     Indication: ANXIETY
     Dates: start: 20110601, end: 20120306
  7. LATUDA [Suspect]
     Indication: SCHIZOPHRENIA
     Route: 048
     Dates: start: 20110928, end: 20120206

REACTIONS (1)
  - COMPLETED SUICIDE [None]
